FAERS Safety Report 8530751-9 (Version None)
Quarter: 2012Q3

REPORT INFORMATION
  Report Type: 
  Country: None (occurrence: None)
  Receive Date: 20120723
  Receipt Date: 20120718
  Transmission Date: 20120928
  Serious: Yes (Death, Hospitalization, Disabling, Other)
  Sender: FDA-Public Use
  Company Number: PHHY2012FR026538

PATIENT
  Sex: Female
  Weight: 70 kg

DRUGS (8)
  1. ONBREZ [Suspect]
     Indication: ASTHMA
  2. ASPIRIN [Concomitant]
     Indication: ARRHYTHMIA
     Dosage: 1 DF, QD
     Route: 048
  3. LYRICA [Concomitant]
     Indication: PAIN
     Dosage: 1 DF, QD
     Route: 048
  4. FLECAINIDE ACETATE [Concomitant]
     Indication: ARRHYTHMIA
     Dosage: 1 DF, QD
     Route: 048
  5. ESOMEPRAZOLE [Concomitant]
     Indication: GASTRITIS
     Dosage: 40 MG, QD
     Route: 048
  6. ESCITALOPRAM [Concomitant]
     Indication: DEPRESSION
     Dosage: 1 DF, QD
     Route: 048
  7. ONBREZ [Suspect]
     Indication: CHRONIC OBSTRUCTIVE PULMONARY DISEASE
     Dosage: 150 UG, QD
     Dates: start: 20120101
  8. SYMBICORT [Concomitant]
     Dosage: 200 / 6 MCG

REACTIONS (13)
  - ASTHENIA [None]
  - FACE OEDEMA [None]
  - HYPERSENSITIVITY [None]
  - CARDIAC FAILURE [None]
  - ANGIOEDEMA [None]
  - DYSPNOEA [None]
  - NECROTISING FASCIITIS [None]
  - BEDRIDDEN [None]
  - SEPTIC SHOCK [None]
  - MALAISE [None]
  - INFECTION [None]
  - RESPIRATORY DISORDER [None]
  - MULTI-ORGAN FAILURE [None]
